FAERS Safety Report 8645068 (Version 3)
Quarter: 2012Q4

REPORT INFORMATION
  Report Type: 
  Country: JP (occurrence: JP)
  Receive Date: 20120702
  Receipt Date: 20121001
  Transmission Date: 20130627
  Serious: Yes (Other)
  Sender: FDA-Public Use
  Company Number: PHHY2012JP055753

PATIENT
  Age: 72 Year
  Sex: Female

DRUGS (2)
  1. ZOLEDRONIC ACID [Suspect]
     Indication: METASTASES TO PELVIS
     Dosage: UNK
     Route: 041
  2. ZOLEDRONIC ACID [Suspect]
     Route: 041

REACTIONS (1)
  - Osteonecrosis of jaw [Not Recovered/Not Resolved]
